FAERS Safety Report 8818387 (Version 3)
Quarter: 2014Q3

REPORT INFORMATION
  Report Type: Spontaneous
  Country: US (occurrence: US)
  Receive Date: 20121001
  Receipt Date: 20140804
  Transmission Date: 20150326
  Serious: Yes (Hospitalization, Disabling, Other)
  Sender: FDA-Public Use
  Company Number: US-009507513-2010SP065476

PATIENT
  Sex: Female
  Weight: 68.4 kg

DRUGS (1)
  1. NUVARING [Suspect]
     Active Substance: ETHINYL ESTRADIOL\ETONOGESTREL
     Indication: CONTRACEPTION
     Dosage: UNK
     Route: 067
     Dates: start: 2004, end: 20080131

REACTIONS (30)
  - Herpes simplex meningoencephalitis [Recovering/Resolving]
  - Convulsion [Unknown]
  - Haematochezia [Unknown]
  - Gonorrhoea [Unknown]
  - Paranasal cyst [Unknown]
  - Embolism arterial [Unknown]
  - Tension headache [Unknown]
  - Syncope [Unknown]
  - Human papilloma virus test positive [Unknown]
  - Abdominal pain [Unknown]
  - Diabetes mellitus inadequate control [Recovering/Resolving]
  - Smear cervix abnormal [Unknown]
  - Hypercoagulation [Unknown]
  - Blood glucose increased [Unknown]
  - Pelvic inflammatory disease [Unknown]
  - Nausea [Recovering/Resolving]
  - Frequent bowel movements [Unknown]
  - Genital herpes simplex [Unknown]
  - Dehydration [Recovering/Resolving]
  - Vomiting [Recovering/Resolving]
  - Superior sagittal sinus thrombosis [Recovering/Resolving]
  - Urinary tract infection [Unknown]
  - Deep vein thrombosis [Unknown]
  - Infection [Unknown]
  - Migraine [Unknown]
  - Large intestine polyp [Unknown]
  - Rectal polyp [Unknown]
  - Genital herpes [Unknown]
  - Constipation [Unknown]
  - Malnutrition [Recovering/Resolving]

NARRATIVE: CASE EVENT DATE: 20050509
